FAERS Safety Report 24135958 (Version 1)
Quarter: 2024Q3

REPORT INFORMATION
  Report Type: Report from Study
  Country: ZA (occurrence: ZA)
  Receive Date: 20240725
  Receipt Date: 20240725
  Transmission Date: 20241017
  Serious: Yes (Death)
  Sender: ROCHE
  Company Number: ZA-ROCHE-10000035125

PATIENT
  Age: 84 Year
  Sex: Male

DRUGS (1)
  1. VABYSMO [Suspect]
     Active Substance: FARICIMAB\FARICIMAB-SVOA
     Indication: Product used for unknown indication
     Dosage: SECOND INJECTION: 30/MAY/2024?THIRD INJECTION:11/JUL/2024
     Route: 050
     Dates: start: 20240418

REACTIONS (1)
  - Death [Fatal]
